FAERS Safety Report 7352946-2 (Version None)
Quarter: 2011Q1

REPORT INFORMATION
  Report Type: 
  Country: None (occurrence: None)
  Receive Date: 20110315
  Receipt Date: 20110304
  Transmission Date: 20110831
  Serious: Yes (Hospitalization)
  Sender: FDA-Public Use
  Company Number: JP-ROCHE-760945

PATIENT
  Sex: Female

DRUGS (4)
  1. ALLEGRA [Concomitant]
     Dates: start: 20110207, end: 20110211
  2. PRAMIEL [Concomitant]
     Route: 048
     Dates: start: 20110207, end: 20110211
  3. TAMIFLU [Suspect]
     Indication: INFLUENZA
     Route: 048
     Dates: start: 20110207, end: 20110207
  4. MUCODYNE [Concomitant]
     Route: 048
     Dates: start: 20110207, end: 20110211

REACTIONS (4)
  - PERIPHERAL COLDNESS [None]
  - LOSS OF CONSCIOUSNESS [None]
  - ABDOMINAL PAIN [None]
  - HYPOAESTHESIA [None]
